FAERS Safety Report 8084852-2 (Version None)
Quarter: 2012Q1

REPORT INFORMATION
  Report Type: 
  Country: None (occurrence: None)
  Receive Date: 20120128
  Receipt Date: 20110323
  Transmission Date: 20120608
  Serious: No
  Sender: FDA-Public Use
  Company Number: US-ABBOTT-11P-163-0713766-00

PATIENT
  Age: 26 Year
  Sex: Female

DRUGS (5)
  1. ABILIFY [Concomitant]
     Indication: AFFECTIVE DISORDER
  2. AZATHIOPRINE [Concomitant]
     Indication: CROHN'S DISEASE
  3. HUMIRA [Suspect]
     Indication: CROHN'S DISEASE
     Dosage: 160 MG LOADING DOSE
     Dates: start: 20110319
  4. LIALDA [Concomitant]
     Indication: CROHN'S DISEASE
  5. OXCARBAZEPINE [Concomitant]
     Indication: AFFECTIVE DISORDER

REACTIONS (4)
  - VOMITING [None]
  - HOT FLUSH [None]
  - NAUSEA [None]
  - ABDOMINAL PAIN [None]
